FAERS Safety Report 10266308 (Version 3)
Quarter: 2014Q3

REPORT INFORMATION
  Report Type: Spontaneous
  Country: US (occurrence: US)
  Receive Date: 20140627
  Receipt Date: 20140815
  Transmission Date: 20150326
  Serious: Yes (Hospitalization)
  Sender: FDA-Public Use
  Company Number: US-ASTRAZENECA-2014SE45558

PATIENT
  Age: 66 Year
  Sex: Female
  Weight: 49.9 kg

DRUGS (10)
  1. SEREVENT DISKUS [Concomitant]
     Active Substance: SALMETEROL XINAFOATE
     Dosage: AS REQUIRED
  2. VENTOLIN [Concomitant]
     Active Substance: ALBUTEROL SULFATE
     Indication: ASTHMA
     Dosage: AT NIGHT
     Dates: start: 2004
  3. PULMICORT FLEXHALER [Suspect]
     Active Substance: BUDESONIDE
     Indication: ASTHMA
     Dosage: 180 MCG 1 PUFF, TWO TIMES A DAY
     Route: 055
  4. ALLERGY SHOTS [Concomitant]
     Active Substance: UNSPECIFIED INGREDIENT
     Indication: ASTHMA
     Dates: start: 2014
  5. ALLERGY SHOTS [Concomitant]
     Active Substance: UNSPECIFIED INGREDIENT
     Indication: BRONCHIECTASIS
     Dates: start: 2014
  6. SINGULAIR [Concomitant]
     Active Substance: MONTELUKAST SODIUM
     Dosage: AS REQUIRED
  7. PULMICORT FLEXHALER [Suspect]
     Active Substance: BUDESONIDE
     Indication: ASTHMA
     Dosage: 180 MCG 2 PUFF, TWO TIMES A DAY
     Route: 055
  8. XOPENEX [Concomitant]
     Active Substance: LEVALBUTEROL HYDROCHLORIDE
     Indication: ASTHMA
     Dosage: AS REQUIRED
     Dates: start: 2004
  9. XOPENEX [Concomitant]
     Active Substance: LEVALBUTEROL HYDROCHLORIDE
     Indication: BRONCHIECTASIS
     Dosage: AS REQUIRED
     Dates: start: 2004
  10. VENTOLIN [Concomitant]
     Active Substance: ALBUTEROL SULFATE
     Indication: BRONCHIECTASIS
     Dosage: AT NIGHT
     Dates: start: 2004

REACTIONS (10)
  - Rhinorrhoea [Unknown]
  - Hypokalaemia [Unknown]
  - Device misuse [Unknown]
  - Pyrexia [Unknown]
  - Influenza [Unknown]
  - Smoke sensitivity [Unknown]
  - Circumstance or information capable of leading to medication error [Unknown]
  - Chest discomfort [Unknown]
  - Cough [Unknown]
  - Drug dose omission [Unknown]

NARRATIVE: CASE EVENT DATE: 2014
